FAERS Safety Report 5497829-8 (Version None)
Quarter: 2007Q4

REPORT INFORMATION
  Report Type: 
  Country: None (occurrence: None)
  Receive Date: 20071023
  Receipt Date: 20071008
  Transmission Date: 20080405
  Serious: Yes (Hospitalization, Other)
  Sender: FDA-Public Use
  Company Number: 100#08#2007-04019

PATIENT
  Age: 58 Year
  Sex: Female

DRUGS (5)
  1. PROPAFENONE (PROPAFENONE) (PROPAFENONE) [Suspect]
     Indication: DRUG USE FOR UNKNOWN INDICATION
     Dosage: 900 MG; LOWERED TO 600 MG
  2. LITHIUM CARBONATE [Suspect]
     Indication: BIPOLAR DISORDER
     Dosage: 900 MG (300 MG, 3 IN 1 D)
  3. AMIODARONE HCL [Suspect]
     Indication: DRUG USE FOR UNKNOWN INDICATION
     Dosage: DOSE FOR SEVERAL YEARS; DISCONTINUED 3 MONTHS AGO; RESTARTED AGAIN AT REDUCED DOSE (100MG/DAY)
  4. ADENOSINE (ADENOSINE) (ADENOSINE) [Concomitant]
  5. PROCAINAMIDE (PROCAINAMIDE) (PROCAINAMIDE) [Concomitant]

REACTIONS (5)
  - BRUGADA SYNDROME [None]
  - CARDIAC DISORDER [None]
  - DIVERTICULUM [None]
  - DRUG INTERACTION POTENTIATION [None]
  - THYROID FUNCTION TEST ABNORMAL [None]
